FAERS Safety Report 5710380-2 (Version None)
Quarter: 2008Q2

REPORT INFORMATION
  Report Type: 
  Country: None (occurrence: None)
  Receive Date: 20080418
  Receipt Date: 20080408
  Transmission Date: 20081010
  Serious: Yes (Other)
  Sender: FDA-Public Use
  Company Number: GR-PFIZER INC-2008032405

PATIENT
  Sex: Female

DRUGS (7)
  1. EPIRUBICIN HYDROCHLORIDE [Suspect]
     Indication: BREAST CANCER
     Route: 042
  2. EPIRUBICIN HYDROCHLORIDE [Suspect]
     Route: 042
  3. ZOFRON [Concomitant]
  4. ZANTAC [Concomitant]
  5. FENISTIL [Concomitant]
  6. DEXAMETHASONE TAB [Concomitant]
  7. NEULASTA [Concomitant]

REACTIONS (1)
  - MYALGIA [None]
